FAERS Safety Report 12503227 (Version 1)
Quarter: 2016Q2

REPORT INFORMATION
  Report Type: Spontaneous
  Country: US (occurrence: US)
  Receive Date: 20160628
  Receipt Date: 20160628
  Transmission Date: 20160815
  Serious: No
  Sender: FDA-Public Use
  Company Number: US-FERRINGPH-2015FE02482

PATIENT
  Age: 35 Year
  Sex: Female

DRUGS (2)
  1. BRAVELLE [Suspect]
     Active Substance: FOLLITROPIN\UROFOLLITROPIN
     Indication: OVARIAN FAILURE
     Dosage: 225 IU UPTO 450 IU NIGHTLY
     Route: 058
     Dates: start: 20150612, end: 201506
  2. BRAVELLE [Suspect]
     Active Substance: FOLLITROPIN\UROFOLLITROPIN
     Dosage: 225 IU UPTO 445 IU NIGHTLY
     Route: 058
     Dates: start: 201507

REACTIONS (4)
  - Rash [Unknown]
  - Paraesthesia [Unknown]
  - Herpes zoster [Unknown]
  - Herpes zoster [Unknown]

NARRATIVE: CASE EVENT DATE: 201506
